FAERS Safety Report 13045538 (Version 1)
Quarter: 2016Q4

REPORT INFORMATION
  Report Type: Report from Study
  Country: US (occurrence: US)
  Receive Date: 20161220
  Receipt Date: 20161220
  Transmission Date: 20170207
  Serious: Yes (Other)
  Sender: FDA-Public Use
  Company Number: US-BAYER-2016-179596

PATIENT
  Age: 58 Year
  Sex: Male

DRUGS (3)
  1. NEXAVAR [Suspect]
     Active Substance: SORAFENIB
     Indication: BLADDER CANCER
     Dosage: 800 MG DAILY DOSE
     Route: 048
     Dates: start: 2016, end: 2016
  2. NEXAVAR [Suspect]
     Active Substance: SORAFENIB
     Indication: HEPATIC CANCER
     Dosage: 800 MG DAILY DOSE
     Route: 048
     Dates: start: 2016
  3. NEXAVAR [Suspect]
     Active Substance: SORAFENIB
     Indication: HEPATIC CANCER
     Dosage: 400 MG, BID
     Route: 048
     Dates: start: 20160817, end: 2016

REACTIONS (21)
  - Palmar-plantar erythrodysaesthesia syndrome [None]
  - Alopecia [None]
  - Drug dose omission [None]
  - Rectal haemorrhage [None]
  - Memory impairment [None]
  - Blister [None]
  - Wound [None]
  - Pain in extremity [None]
  - Chest pain [None]
  - Abnormal loss of weight [None]
  - Nausea [None]
  - Malaise [None]
  - Haematochezia [None]
  - Skin exfoliation [None]
  - Abdominal discomfort [None]
  - Decreased appetite [None]
  - Back pain [None]
  - Skin fissures [None]
  - Diarrhoea [None]
  - Diarrhoea [None]
  - Gastric haemorrhage [None]

NARRATIVE: CASE EVENT DATE: 2016
